FAERS Safety Report 8297582-9 (Version None)
Quarter: 2012Q2

REPORT INFORMATION
  Report Type: 
  Country: None (occurrence: None)
  Receive Date: 20120417
  Receipt Date: 20120405
  Transmission Date: 20120825
  Serious: Yes (Hospitalization)
  Sender: FDA-Public Use
  Company Number: 2012SP005705

PATIENT
  Sex: Male

DRUGS (5)
  1. MIRTAZAPINE [Suspect]
     Indication: MATERNAL EXPOSURE DURING PREGNANCY
     Dosage: UNK, TRPL
     Route: 064
  2. ZOLOFT [Suspect]
     Indication: MATERNAL EXPOSURE DURING PREGNANCY
     Dosage: UNK, TRPL
     Route: 064
  3. ZOLPIDEM TARTRATE [Suspect]
     Indication: MATERNAL EXPOSURE DURING PREGNANCY
     Dosage: UNK, TRPL
     Route: 064
  4. ALPRAZOLAM [Suspect]
     Indication: MATERNAL EXPOSURE DURING PREGNANCY
     Dosage: UNK, TRPL
     Route: 064
  5. ALPRAZOLAM [Suspect]
     Indication: MATERNAL EXPOSURE DURING PREGNANCY
     Dosage: UNK, TRPL
     Route: 064

REACTIONS (4)
  - VOMITING NEONATAL [None]
  - IRRITABILITY [None]
  - WEIGHT DECREASE NEONATAL [None]
  - MATERNAL DRUGS AFFECTING FOETUS [None]
